FAERS Safety Report 9449006 (Version 1)
Quarter: 2013Q3

REPORT INFORMATION
  Report Type: Spontaneous
  Country: BR (occurrence: BR)
  Receive Date: 20130808
  Receipt Date: 20130808
  Transmission Date: 20140515
  Serious: Yes (Other)
  Sender: FDA-Public Use
  Company Number: BR-PFIZER INC-2013227690

PATIENT
  Age: 62 Year
  Sex: Male
  Weight: 83 kg

DRUGS (1)
  1. LIPITOR [Suspect]
     Dosage: 20 MG STRENGTH
     Route: 048
     Dates: start: 20090805

REACTIONS (1)
  - Cardiac disorder [Unknown]
